FAERS Safety Report 23526330 (Version 1)
Quarter: 2024Q1

REPORT INFORMATION
  Report Type: Spontaneous
  Country: IN (occurrence: None)
  Receive Date: 20240214
  Receipt Date: 20240214
  Transmission Date: 20240410
  Serious: Yes (Disabling)
  Sender: FDA-Public Use
  Company Number: None

PATIENT
  Age: 30 Month
  Sex: Male

DRUGS (2)
  1. PODOPHYLLUM PELTATUM [Suspect]
     Active Substance: PODOPHYLLUM PELTATUM ROOT
     Dates: start: 20240209, end: 20240213
  2. MINOXIDIL [Concomitant]
     Active Substance: MINOXIDIL

REACTIONS (3)
  - Application site reaction [None]
  - Skin fissures [None]
  - Oral disorder [None]

NARRATIVE: CASE EVENT DATE: 20240213
